FAERS Safety Report 7777380-2 (Version None)
Quarter: 2011Q3

REPORT INFORMATION
  Report Type: 
  Country: None (occurrence: None)
  Receive Date: 20110922
  Receipt Date: 20110915
  Transmission Date: 20111222
  Serious: Yes (Hospitalization)
  Sender: FDA-Public Use
  Company Number: TIP2011A00125

PATIENT
  Age: 63 Year
  Sex: Male

DRUGS (4)
  1. TOTALIP 40 MG (ATORVASTATIN CALCIUM) [Concomitant]
  2. BLOPRESS 16 (CANDESARTAN CITEXETIL) [Concomitant]
  3. COMPETACT (PIOGLITAZONE HYDROCHLORIDE, METFORMIN HYDROCHLORIDE) [Suspect]
     Indication: TYPE 2 DIABETES MELLITUS
     Dosage: 30 + 1700 MG (2 IN 1 D) ORAL
     Route: 048
     Dates: start: 20100401, end: 20110801
  4. LANSOX 30 (LANSOPRAZOLE) [Concomitant]

REACTIONS (2)
  - HAEMATURIA [None]
  - BLADDER TRANSITIONAL CELL CARCINOMA [None]
